FAERS Safety Report 7939703-0 (Version None)
Quarter: 2011Q4

REPORT INFORMATION
  Report Type: 
  Country: None (occurrence: None)
  Receive Date: 20111125
  Receipt Date: 20111117
  Transmission Date: 20120403
  Serious: Yes (Hospitalization, Other)
  Sender: FDA-Public Use
  Company Number: PHHY2011ZA56543

PATIENT
  Sex: Female

DRUGS (8)
  1. ATORVASTATIN [Concomitant]
  2. PERINDOPRIL ERBUMINE [Concomitant]
     Dosage: 20 MG, DAILY
  3. INDAPAMIDE [Concomitant]
     Dosage: 1.5 MG, DAILY
  4. ZOLEDRONOC ACID [Suspect]
     Indication: OSTEOPOROSIS
     Dosage: 5 MG/100ML
     Route: 042
     Dates: start: 20100301
  5. CARVEDILOL [Concomitant]
     Dosage: 12.5 MG, BID
  6. ASPIRIN [Concomitant]
  7. PROTOS [Concomitant]
  8. PERINDOPRIL ERBUMINE [Concomitant]
     Dosage: 10 MG, DAILY

REACTIONS (6)
  - ATRIAL FIBRILLATION [None]
  - PERICARDIAL EFFUSION [None]
  - ANGINA PECTORIS [None]
  - MALAISE [None]
  - CARDIAC DISORDER [None]
  - PALPITATIONS [None]
